FAERS Safety Report 17956889 (Version 1)
Quarter: 2020Q2

REPORT INFORMATION
  Report Type: Spontaneous
  Country: US (occurrence: US)
  Receive Date: 20200629
  Receipt Date: 20200629
  Transmission Date: 20200714
  Serious: Yes (Death)
  Sender: FDA-Public Use
  Company Number: None

PATIENT
  Age: 88 Year
  Sex: Male

DRUGS (2)
  1. VELTASSA [Concomitant]
     Active Substance: PATIROMER
     Dates: start: 20181024, end: 20200626
  2. PROCRIT [Suspect]
     Active Substance: ERYTHROPOIETIN

REACTIONS (1)
  - Death [None]

NARRATIVE: CASE EVENT DATE: 20200626
